FAERS Safety Report 9537920 (Version 1)
Quarter: 2013Q3

REPORT INFORMATION
  Report Type: Spontaneous
  Country: FR (occurrence: FR)
  Receive Date: 20130919
  Receipt Date: 20130919
  Transmission Date: 20140515
  Serious: Yes (Death, Hospitalization)
  Sender: FDA-Public Use
  Company Number: PHHY2013FR103422

PATIENT
  Age: 25 Year
  Sex: Female

DRUGS (4)
  1. HYDROCORTISONE [Suspect]
     Dosage: 100 MG, UNK
     Route: 042
  2. PREDNISOLONE [Interacting]
     Dosage: 40 MG, UNK
     Route: 048
  3. ROPIVACAINE [Suspect]
     Indication: ANALGESIC THERAPY
  4. MIFEPRISTONE [Interacting]
     Indication: ABORTION INDUCED
     Dosage: 200 MG, UNK

REACTIONS (7)
  - Death [Fatal]
  - Respiratory failure [Unknown]
  - Dyspnoea at rest [Unknown]
  - Hypoxic-ischaemic encephalopathy [Unknown]
  - Drug interaction [Unknown]
  - Superinfection [Unknown]
  - Maternal exposure during pregnancy [Unknown]
